FAERS Safety Report 16895316 (Version 1)
Quarter: 2019Q4

REPORT INFORMATION
  Report Type: Spontaneous
  Country: US (occurrence: US)
  Receive Date: 20191008
  Receipt Date: 20191008
  Transmission Date: 20200122
  Serious: Yes (Death, Other)
  Sender: FDA-Public Use
  Company Number: US-009507513-1910USA006747

PATIENT
  Age: 81 Year
  Sex: Male

DRUGS (1)
  1. KEYTRUDA [Suspect]
     Active Substance: PEMBROLIZUMAB
     Dosage: UNK

REACTIONS (5)
  - Stridor [Unknown]
  - Myocardial infarction [Fatal]
  - Vocal cord paralysis [Unknown]
  - Myocarditis [Unknown]
  - Infarction [Unknown]

NARRATIVE: CASE EVENT DATE: 20190916
